FAERS Safety Report 4475494-6 (Version None)
Quarter: 2004Q4

REPORT INFORMATION
  Report Type: 
  Country: None (occurrence: None)
  Receive Date: 20041015
  Receipt Date: 20010822
  Transmission Date: 20050328
  Serious: Yes (Hospitalization)
  Sender: FDA-Public Use
  Company Number: US-MERCK-01082423

PATIENT
  Age: 57 Year
  Sex: Female
  Weight: 113 kg

DRUGS (11)
  1. CARDIZEM [Concomitant]
     Indication: HYPERTENSION
     Route: 065
  2. ESTRADIOL [Concomitant]
     Indication: POSTMENOPAUSE
     Route: 065
  3. LASIX [Concomitant]
     Indication: OEDEMA PERIPHERAL
     Route: 065
     Dates: start: 20010601, end: 20010601
  4. LASIX [Concomitant]
     Route: 065
     Dates: start: 20010601, end: 20010101
  5. CLARITIN [Concomitant]
     Route: 065
  6. TOPROL-XL [Concomitant]
     Indication: ARRHYTHMIA
     Route: 065
  7. VIOXX [Suspect]
     Indication: OSTEOARTHRITIS
     Route: 048
     Dates: start: 20010601, end: 20010823
  8. PRILOSEC [Concomitant]
     Indication: GASTROOESOPHAGEAL REFLUX DISEASE
     Route: 065
  9. VIOXX [Suspect]
     Route: 048
     Dates: start: 20000612, end: 20010601
  10. VIOXX [Suspect]
     Route: 048
     Dates: start: 19990617, end: 20000612
  11. VIOXX [Suspect]
     Route: 048
     Dates: end: 20011001

REACTIONS (4)
  - ATRIAL FIBRILLATION [None]
  - BLOOD PRESSURE INCREASED [None]
  - CARDIAC DISORDER [None]
  - HEART RATE INCREASED [None]
